FAERS Safety Report 9347804 (Version 2)
Quarter: 2014Q1

REPORT INFORMATION
  Report Type: Spontaneous
  Country: US (occurrence: US)
  Receive Date: 20130614
  Receipt Date: 20140311
  Transmission Date: 20141002
  Serious: No
  Sender: FDA-Public Use
  Company Number: US-PFIZER INC-2013178603

PATIENT
  Age: 58 Year
  Sex: Female
  Weight: 78.91 kg

DRUGS (1)
  1. LYRICA [Suspect]
     Indication: FIBROMYALGIA
     Dosage: 50 MG, DAILY

REACTIONS (5)
  - Expired drug administered [Unknown]
  - Weight increased [Unknown]
  - Constipation [Unknown]
  - Oliguria [Unknown]
  - Local swelling [Unknown]
